FAERS Safety Report 8053997-5 (Version None)
Quarter: 2012Q1

REPORT INFORMATION
  Report Type: 
  Country: None (occurrence: None)
  Receive Date: 20120118
  Receipt Date: 20120110
  Transmission Date: 20120608
  Serious: Yes (Disabling)
  Sender: FDA-Public Use
  Company Number: US-ASTRAZENECA-2012SE01898

PATIENT
  Sex: Female
  Weight: 58.1 kg

DRUGS (11)
  1. LORAZEPAM [Concomitant]
  2. NEXIUM [Suspect]
     Indication: GASTROOESOPHAGEAL REFLUX DISEASE
     Route: 048
     Dates: start: 20030101
  3. PYRIDOSTIGMINE BROMIDE [Concomitant]
  4. PREMARIN [Concomitant]
  5. LASIX [Concomitant]
  6. HYDROCORTISONE [Concomitant]
  7. POTASSIUM CHLORIDE [Concomitant]
  8. PRAVASTATIN [Concomitant]
     Indication: BLOOD CHOLESTEROL ABNORMAL
  9. HYDROCHLOROTHIAZIDE [Concomitant]
  10. ASPIRIN [Concomitant]
  11. CLONIDINE [Concomitant]

REACTIONS (3)
  - DISABILITY [None]
  - MEMORY IMPAIRMENT [None]
  - SPEECH DISORDER [None]
